FAERS Safety Report 4370337-3 (Version None)
Quarter: 2004Q2

REPORT INFORMATION
  Report Type: 
  Country: None (occurrence: None)
  Receive Date: 20040603
  Receipt Date: 20040318
  Transmission Date: 20050107
  Serious: Yes (Hospitalization, Other)
  Sender: FDA-Public Use
  Company Number: US-BRISTOL-MYERS SQUIBB COMPANY-12537072

PATIENT
  Age: 35 Year
  Sex: Male
  Weight: 154 kg

DRUGS (5)
  1. ABILIFY [Suspect]
     Indication: BIPOLAR DISORDER
     Route: 048
     Dates: start: 20031118
  2. TRAZODONE HCL [Suspect]
     Dates: start: 20031118, end: 20031118
  3. TOPAMAX [Concomitant]
  4. KLONOPIN [Concomitant]
  5. LAMICTAL [Concomitant]

REACTIONS (2)
  - ANXIETY [None]
  - MANIA [None]
